FAERS Safety Report 18604847 (Version 3)
Quarter: 2021Q2

REPORT INFORMATION
  Report Type: Report from Study
  Country: US (occurrence: US)
  Receive Date: 20201211
  Receipt Date: 20210527
  Transmission Date: 20210717
  Serious: Yes (Hospitalization, Other)
  Sender: FDA-Public Use
  Company Number: US-TAKEDA-2020TUS018703

PATIENT
  Age: 77 Year
  Sex: Female
  Weight: 73 kg

DRUGS (6)
  1. IXAZOMIB [Suspect]
     Active Substance: IXAZOMIB
     Indication: PLASMA CELL MYELOMA
     Dosage: 4 MILLIGRAM
     Route: 065
     Dates: start: 201909, end: 202002
  2. ASPIRIN. [Concomitant]
     Active Substance: ASPIRIN
     Dosage: 81 MILLIGRAM, QD
     Route: 048
  3. POMALYST [Concomitant]
     Active Substance: POMALIDOMIDE
     Dosage: UNK
  4. ATORVASTATIN [Concomitant]
     Active Substance: ATORVASTATIN
     Dosage: 40 MILLIGRAM
     Route: 065
  5. OXYCODONE AND ACETAMINOPHEN [Concomitant]
     Active Substance: ACETAMINOPHEN\OXYCODONE HYDROCHLORIDE
     Indication: PAIN
     Dosage: UNK, Q4HR
     Route: 048
  6. DEXAMETHASONE. [Concomitant]
     Active Substance: DEXAMETHASONE
     Dosage: 4 MILLIGRAM
     Route: 065

REACTIONS (12)
  - Urinary tract infection [Unknown]
  - Blood urine present [Unknown]
  - Blood count abnormal [Unknown]
  - Hypoaesthesia [Unknown]
  - Hypersomnia [Unknown]
  - Product dose omission issue [Unknown]
  - Haematochezia [Unknown]
  - Vomiting [Unknown]
  - Fall [Unknown]
  - Asthenia [Unknown]
  - Skin discolouration [Unknown]
  - Swelling [Unknown]

NARRATIVE: CASE EVENT DATE: 20210519
